FAERS Safety Report 7579500-1 (Version None)
Quarter: 2011Q2

REPORT INFORMATION
  Report Type: 
  Country: None (occurrence: None)
  Receive Date: 20110629
  Receipt Date: 20110609
  Transmission Date: 20111010
  Serious: Yes (Death, Hospitalization, Other)
  Sender: FDA-Public Use
  Company Number: US-BAYER-201041742NA

PATIENT
  Age: 27 Year
  Sex: Male

DRUGS (13)
  1. TRASYLOL [Suspect]
     Indication: TRICUSPID VALVE REPAIR
     Dosage: UNK
     Dates: start: 20070103
  2. FLECAINIDE ACETATE [Concomitant]
     Dosage: 100 MG, BID
     Route: 048
     Dates: end: 20070928
  3. TRASYLOL [Suspect]
     Indication: CARDIAC PACEMAKER INSERTION
  4. COUMADIN [Concomitant]
     Route: 048
  5. TRASYLOL [Suspect]
     Indication: PULMONARY VALVE REPLACEMENT
     Route: 042
     Dates: start: 20071220
  6. TRASYLOL [Suspect]
     Indication: CARDIAC ABLATION
  7. SOTALOL HCL [Concomitant]
     Dosage: 240 MG EVERY NIGHT
     Route: 048
     Dates: start: 20070901
  8. PROCAINAMIDE [Concomitant]
     Dosage: 1500 MG EVERY EVENING
     Route: 048
  9. BLOOD AND RELATED PRODUCTS [Concomitant]
  10. HEPARIN [Concomitant]
  11. PROCAINAMIDE [Concomitant]
     Dosage: 1500 MG EVERY MORNING
     Route: 048
  12. SOTALOL HCL [Concomitant]
     Dosage: 360 MG EVERY MORNING
     Route: 048
     Dates: start: 20070901
  13. PROTAMINE SULFATE [Concomitant]

REACTIONS (13)
  - RENAL INJURY [None]
  - UNEVALUABLE EVENT [None]
  - PAIN [None]
  - EMOTIONAL DISTRESS [None]
  - ANXIETY [None]
  - COAGULOPATHY [None]
  - FEAR [None]
  - DEATH [None]
  - RENAL FAILURE [None]
  - RENAL IMPAIRMENT [None]
  - INJURY [None]
  - MULTI-ORGAN FAILURE [None]
  - STRESS [None]
